FAERS Safety Report 8112131-3 (Version None)
Quarter: 2012Q1

REPORT INFORMATION
  Report Type: 
  Country: None (occurrence: None)
  Receive Date: 20120131
  Receipt Date: 20120118
  Transmission Date: 20120608
  Serious: Yes (Other)
  Sender: FDA-Public Use
  Company Number: 2012-00065

PATIENT
  Age: 65 Year
  Sex: Female
  Weight: 49.8957 kg

DRUGS (3)
  1. CONJUGATED ESTROGENS (PREMARIN) (UNKNOWN) [Concomitant]
  2. MELOXICAM [Suspect]
     Indication: ARTHRITIS
     Dosage: 15 MG (7.5 MG, 2 IN 1 D), PER ORAL
     Route: 048
     Dates: start: 20081201, end: 20111201
  3. VITAMIN D (UNKNOWN) [Concomitant]

REACTIONS (3)
  - MUSCLE SPASMS [None]
  - BONE LOSS [None]
  - BONE PAIN [None]
